FAERS Safety Report 5642151-X (Version None)
Quarter: 2008Q1

REPORT INFORMATION
  Report Type: 
  Country: None (occurrence: None)
  Receive Date: 20080225
  Receipt Date: 20080213
  Transmission Date: 20080703
  Serious: Yes (Life-Threatening)
  Sender: FDA-Public Use
  Company Number: 2008-00507

PATIENT
  Sex: Female

DRUGS (1)
  1. VELCADE [Suspect]
     Indication: LEUKAEMIA PLASMACYTIC
     Dosage: 1.30 MG/M2

REACTIONS (3)
  - HYPOXIA [None]
  - PULMONARY FIBROSIS [None]
  - RESPIRATORY FAILURE [None]
